FAERS Safety Report 16016115 (Version 1)
Quarter: 2019Q1

REPORT INFORMATION
  Report Type: Spontaneous
  Country: US (occurrence: US)
  Receive Date: 20190228
  Receipt Date: 20190228
  Transmission Date: 20190418
  Serious: No
  Sender: FDA-Public Use
  Company Number: US-BIOGEN-2019BI00693204

PATIENT
  Sex: Male

DRUGS (1)
  1. TECFIDERA [Suspect]
     Active Substance: DIMETHYL FUMARATE
     Indication: MULTIPLE SCLEROSIS
     Route: 065
     Dates: start: 20150330, end: 20180201

REACTIONS (3)
  - Dysgraphia [Not Recovered/Not Resolved]
  - Reading disorder [Not Recovered/Not Resolved]
  - Memory impairment [Not Recovered/Not Resolved]
